FAERS Safety Report 25944139 (Version 4)
Quarter: 2025Q4

REPORT INFORMATION
  Report Type: Report from Study
  Country: US (occurrence: US)
  Receive Date: 20251021
  Receipt Date: 20251107
  Transmission Date: 20260118
  Serious: No
  Sender: UNITED THERAPEUTICS
  Company Number: US-UNITED THERAPEUTICS-UNT-2025-034572

PATIENT
  Age: 58 Year
  Sex: Female

DRUGS (11)
  1. TREPROSTINIL [Suspect]
     Active Substance: TREPROSTINIL
     Indication: Pulmonary arterial hypertension
     Dosage: 4 MG, TID
     Dates: start: 202510, end: 20251006
  2. TREPROSTINIL [Suspect]
     Active Substance: TREPROSTINIL
     Dosage: 5 MG, TID
     Dates: start: 20251006, end: 202510
  3. TREPROSTINIL [Suspect]
     Active Substance: TREPROSTINIL
     Dosage: 4 MG (4 TABLETS OF 1 MG), TID
     Dates: start: 202510, end: 202510
  4. TREPROSTINIL [Suspect]
     Active Substance: TREPROSTINIL
     Dosage: 4.125 MG (1 TABLET OF 0.125 MG, 1 MG AND 2.5 MG AND 2 TABLETS OF 0.25 MG), TID
     Dates: start: 202510
  5. ORENITRAM [Suspect]
     Active Substance: TREPROSTINIL
     Indication: Pulmonary arterial hypertension
     Dosage: UNK
  6. ORENITRAM [Suspect]
     Active Substance: TREPROSTINIL
     Indication: Pulmonary arterial hypertension
     Dosage: UNK
  7. ORENITRAM [Suspect]
     Active Substance: TREPROSTINIL
     Indication: Pulmonary arterial hypertension
     Dosage: UNK
  8. ORENITRAM [Suspect]
     Active Substance: TREPROSTINIL
     Indication: Pulmonary arterial hypertension
     Dosage: UNK
  9. ORENITRAM [Suspect]
     Active Substance: TREPROSTINIL
     Indication: Pulmonary arterial hypertension
     Dosage: UNK
  10. SOTATERCEPT [Concomitant]
     Active Substance: SOTATERCEPT
     Indication: Product used for unknown indication
     Dosage: UNK
  11. UPTRAVI [Concomitant]
     Active Substance: SELEXIPAG
     Indication: Product used for unknown indication
     Dosage: UNK

REACTIONS (9)
  - Abdominal discomfort [Unknown]
  - Vomiting [Unknown]
  - Flushing [Not Recovered/Not Resolved]
  - Pain [Unknown]
  - Headache [Unknown]
  - Influenza like illness [Not Recovered/Not Resolved]
  - Oxygen saturation decreased [Unknown]
  - Abdominal rigidity [Unknown]
  - Incorrect dose administered [Unknown]

NARRATIVE: CASE EVENT DATE: 20251001
